FAERS Safety Report 12613934 (Version 1)
Quarter: 2016Q3

REPORT INFORMATION
  Report Type: Spontaneous
  Country: US (occurrence: None)
  Receive Date: 20160801
  Receipt Date: 20160801
  Transmission Date: 20161109
  Serious: No
  Sender: FDA-Public Use
  Company Number: None

PATIENT
  Sex: Female

DRUGS (1)
  1. LOVASTATIN. [Suspect]
     Active Substance: LOVASTATIN

REACTIONS (6)
  - Blood glucose increased [None]
  - Blood pressure increased [None]
  - Confusional state [None]
  - Dizziness [None]
  - Blood ketone body present [None]
  - Prescription drug used without a prescription [None]
